FAERS Safety Report 5849673-7 (Version None)
Quarter: 2008Q3

REPORT INFORMATION
  Report Type: 
  Country: None (occurrence: None)
  Receive Date: 20080815
  Receipt Date: 20080804
  Transmission Date: 20090109
  Serious: Yes (Death)
  Sender: FDA-Public Use
  Company Number: A-CH2008-21490

PATIENT
  Age: 62 Year
  Sex: Female
  Weight: 70 kg

DRUGS (5)
  1. TRACLEER [Suspect]
     Indication: PULMONARY HYPERTENSION
     Dosage: 125 MG BID ORAL
     Route: 048
     Dates: end: 20080714
  2. REVATIO [Suspect]
  3. FUROSEMIDE [Suspect]
     Dosage: UNK
  4. ALDACTONE [Suspect]
     Indication: DRUG USE FOR UNKNOWN INDICATION
     Dosage: UNK
  5. FLOLAN [Suspect]
     Indication: DRUG USE FOR UNKNOWN INDICATION
     Dosage: UNK

REACTIONS (11)
  - ASPIRATION [None]
  - CATHETERISATION CARDIAC ABNORMAL [None]
  - CIRCULATORY COLLAPSE [None]
  - CONDITION AGGRAVATED [None]
  - HEADACHE [None]
  - LEFT VENTRICULAR FAILURE [None]
  - NAUSEA [None]
  - PNEUMOTHORAX [None]
  - SUDDEN DEATH [None]
  - TACHYCARDIA [None]
  - VOMITING [None]
